FAERS Safety Report 6856767-6 (Version None)
Quarter: 2010Q3

REPORT INFORMATION
  Report Type: 
  Country: None (occurrence: None)
  Receive Date: 20100719
  Receipt Date: 20100707
  Transmission Date: 20110219
  Serious: Yes (Life-Threatening, Hospitalization, Other)
  Sender: FDA-Public Use
  Company Number: DE-ELI_LILLY_AND_COMPANY-DE201006003139

PATIENT
  Sex: Male
  Weight: 90 kg

DRUGS (6)
  1. EFFIENT [Suspect]
     Indication: ACUTE CORONARY SYNDROME
     Dates: start: 20100304, end: 20100420
  2. ASPIRIN [Concomitant]
     Dosage: 100 MG, UNKNOWN
     Route: 065
  3. CARMEN [Concomitant]
     Dosage: 10 MG, UNKNOWN
     Route: 065
  4. DELIX PLUS [Concomitant]
     Dosage: UNK, UNKNOWN
     Route: 065
  5. METOHEXAL [Concomitant]
     Dosage: 95 MG, UNKNOWN
     Route: 065
  6. SIMVASTATIN [Concomitant]
     Dosage: 40 MG, UNKNOWN
     Route: 065

REACTIONS (1)
  - GUILLAIN-BARRE SYNDROME [None]
